FAERS Safety Report 9759812 (Version 3)
Quarter: 2013Q4

REPORT INFORMATION
  Report Type: Spontaneous
  Country: JP (occurrence: JP)
  Receive Date: 20131216
  Receipt Date: 20131220
  Transmission Date: 20140711
  Serious: Yes (Other)
  Sender: FDA-Public Use
  Company Number: JP-PFIZER INC-2013353818

PATIENT
  Age: 79 Year
  Sex: Female

DRUGS (11)
  1. ZOSYN [Suspect]
     Indication: PNEUMONIA ASPIRATION
     Dosage: 13.5 G, 2X/DAY
     Route: 041
     Dates: start: 20131127, end: 20131128
  2. MEVALOTIN [Concomitant]
     Indication: HYPERLIPIDAEMIA
     Dosage: 10 MG, DAILY
     Route: 048
  3. PARIET [Concomitant]
     Indication: GASTRITIS
     Dosage: 10 MG, DAILY
     Route: 048
  4. AROTINOLOL HYDROCHLORIDE [Concomitant]
     Indication: ESSENTIAL TREMOR
     Dosage: 10 MG, DAILY
     Route: 048
  5. EXCEGRAN [Concomitant]
     Indication: PARKINSON^S DISEASE
     Dosage: 50 MG, DAILY
     Route: 048
  6. DEPAS [Concomitant]
     Indication: INSOMNIA
     Dosage: 0.5 MG, DAILY
     Route: 048
  7. NELBON [Concomitant]
     Indication: INSOMNIA
     Dosage: 5 MG, DAILY
     Route: 048
  8. MEILAX [Concomitant]
     Indication: INSOMNIA
     Dosage: 1 MG, DAILY
     Route: 048
  9. NEODOPASTON [Concomitant]
     Indication: PARKINSON^S DISEASE
     Dosage: 300 MG, DAILY
     Route: 048
  10. SYMMETREL [Concomitant]
     Indication: PARKINSON^S DISEASE
     Dosage: 150 MG, DAILY
     Route: 048
  11. MAGMITT [Concomitant]
     Indication: CONSTIPATION
     Dosage: 1500 MG, DAILY
     Route: 048

REACTIONS (2)
  - Pancytopenia [Unknown]
  - Platelet count decreased [Recovering/Resolving]
